FAERS Safety Report 5835620-0 (Version None)
Quarter: 2008Q3

REPORT INFORMATION
  Report Type: 
  Country: None (occurrence: None)
  Receive Date: 20080806
  Receipt Date: 20080804
  Transmission Date: 20090109
  Serious: Yes (Hospitalization)
  Sender: FDA-Public Use
  Company Number: PHHO2000AU00257

PATIENT
  Sex: Male
  Weight: 78 kg

DRUGS (2)
  1. NO TREATMENT RECEIVED NOMED [Suspect]
     Dosage: NOT APPLICABLE
  2. CYCLOSPORINE [Suspect]
     Dates: start: 19990801

REACTIONS (4)
  - ATRIAL FIBRILLATION [None]
  - HYPOMAGNESAEMIA [None]
  - HYPOXIA [None]
  - POST PROCEDURAL HAEMORRHAGE [None]
